FAERS Safety Report 9924887 (Version 2)
Quarter: 2014Q2

REPORT INFORMATION
  Report Type: Spontaneous
  Country: BR (occurrence: BR)
  Receive Date: 20140226
  Receipt Date: 20140407
  Transmission Date: 20141212
  Serious: Yes (Other)
  Sender: FDA-Public Use
  Company Number: BR-BRISTOL-MYERS SQUIBB COMPANY-20268777

PATIENT
  Age: 63 Year
  Sex: Female

DRUGS (2)
  1. GLIFAGE XR [Suspect]
     Indication: DIABETES MELLITUS
     Dosage: TABLETS
     Dates: start: 20140206
  2. HYDROCHLOROTHIAZIDE [Concomitant]
     Indication: HYPERTENSION
     Dosage: TABLETS

REACTIONS (1)
  - Blood pressure increased [Recovered/Resolved]
